FAERS Safety Report 24383224 (Version 3)
Quarter: 2025Q2

REPORT INFORMATION
  Report Type: Spontaneous
  Country: US (occurrence: US)
  Receive Date: 20241001
  Receipt Date: 20250521
  Transmission Date: 20250716
  Serious: No
  Sender: CATALYST PHARMA
  Company Number: US-CATALYST PHARMACEUTICALS-US-CATA-24-00529

PATIENT
  Sex: Male
  Weight: 48.6 kg

DRUGS (21)
  1. AGAMREE [Suspect]
     Active Substance: VAMOROLONE
     Indication: Duchenne muscular dystrophy
     Dosage: 5.3 ML ONCE A DAY
     Route: 048
     Dates: start: 20240531, end: 20250201
  2. GABAPENTIN [Concomitant]
     Active Substance: GABAPENTIN
     Indication: Pain
     Dosage: 250 MG PER 5 ML, 2 ML DAILY EVERY NIGHT AT BEDTIME
     Route: 048
     Dates: start: 20240510
  3. GABAPENTIN [Concomitant]
     Active Substance: GABAPENTIN
     Dosage: 100 MG (2 ML) THREE TIMES A DAY
     Route: 048
  4. VITAMIN D [Concomitant]
     Active Substance: VITAMIN D NOS
     Indication: Bone disorder
     Dosage: 10 MG DAILY
     Route: 048
     Dates: start: 20240528
  5. VITAMIN D [Concomitant]
     Active Substance: VITAMIN D NOS
     Dosage: 125 MCG (12.5 ML) EVERY DAY
     Route: 048
  6. CETIRIZINE [Concomitant]
     Active Substance: CETIRIZINE HYDROCHLORIDE
     Indication: Seasonal allergy
     Route: 048
     Dates: start: 20240109
  7. CETIRIZINE [Concomitant]
     Active Substance: CETIRIZINE HYDROCHLORIDE
     Indication: Hypersensitivity
  8. ALBUTEROL [Concomitant]
     Active Substance: ALBUTEROL
     Indication: Cough
     Route: 055
     Dates: start: 20230505
  9. ALBUTEROL [Concomitant]
     Active Substance: ALBUTEROL
     Indication: Dyspnoea
  10. ALBUTEROL [Concomitant]
     Active Substance: ALBUTEROL
     Indication: Nasal congestion
  11. FAMOTIDINE [Concomitant]
     Active Substance: FAMOTIDINE
     Indication: Gastrooesophageal reflux disease
     Dosage: 20 MG EVERY NIGHT AT BEDTIME
     Route: 048
     Dates: start: 20240510
  12. FAMOTIDINE [Concomitant]
     Active Substance: FAMOTIDINE
     Dosage: 2.5 ML DAILY
     Route: 048
  13. FAMOTIDINE [Concomitant]
     Active Substance: FAMOTIDINE
     Dosage: 40 MG (5 ML) EVERY NIGHT AT BEDTIME (QHS)
     Route: 048
  14. IBUPROFEN [Concomitant]
     Active Substance: IBUPROFEN
     Indication: Pain
     Route: 048
     Dates: start: 20240206
  15. LISINOPRIL [Concomitant]
     Active Substance: LISINOPRIL
     Indication: Cardiac disorder
     Dosage: 2.5 MG DAILY
     Route: 048
     Dates: start: 20240510
  16. PREDNISONE [Concomitant]
     Active Substance: PREDNISONE
     Indication: Product used for unknown indication
     Dosage: 350 MG WEEKLY
     Route: 048
     Dates: start: 20240510
  17. PREDNISONE [Concomitant]
     Active Substance: PREDNISONE
     Route: 048
  18. UBIQUINOL [Concomitant]
     Active Substance: UBIQUINOL
     Indication: Product used for unknown indication
     Dosage: 100 MG (1 ML) DAILY
     Route: 048
     Dates: start: 20240510
  19. VITAMIN D2 [Concomitant]
     Active Substance: ERGOCALCIFEROL
     Indication: Bone disorder
     Dosage: 10 MCG ONCE DAILY
     Route: 065
  20. MELATONIN [Concomitant]
     Active Substance: MELATONIN
     Indication: Insomnia
     Route: 048
  21. DELANDISTROGENE MOXEPARVOVEC ROKL [Concomitant]
     Indication: Product used for unknown indication
     Route: 042

REACTIONS (18)
  - Abdominal discomfort [Unknown]
  - Pollakiuria [Recovered/Resolved]
  - Haemoglobin increased [Unknown]
  - Haematocrit increased [Unknown]
  - Mean platelet volume decreased [Unknown]
  - Monocyte percentage increased [Unknown]
  - Immature granulocyte percentage increased [Unknown]
  - Monocyte count increased [Unknown]
  - Immature granulocyte count increased [Unknown]
  - Blood creatinine decreased [Unknown]
  - Aspartate aminotransferase increased [Unknown]
  - Alanine aminotransferase increased [Unknown]
  - Blood creatine phosphokinase increased [Unknown]
  - Blood triglycerides increased [Unknown]
  - Blood cholesterol increased [Unknown]
  - Low density lipoprotein increased [Unknown]
  - Vitamin D decreased [Unknown]
  - Weight increased [Not Recovered/Not Resolved]

NARRATIVE: CASE EVENT DATE: 20240101
